FAERS Safety Report 13443475 (Version 2)
Quarter: 2018Q2

REPORT INFORMATION
  Report Type: Spontaneous
  Country: US (occurrence: US)
  Receive Date: 20170414
  Receipt Date: 20180402
  Transmission Date: 20180711
  Serious: No
  Sender: FDA-Public Use
  Company Number: US-PIERREL PHARMA S.P.A.-2017PIR00006

PATIENT
  Age: 41 Year
  Sex: Male
  Weight: 104.31 kg

DRUGS (1)
  1. ORABLOC [Suspect]
     Active Substance: ARTICAINE HYDROCHLORIDE\EPINEPHRINE BITARTRATE
     Indication: DENTAL CARE
     Dosage: 1.8 ML, ONCE
     Dates: start: 20161220, end: 20161220

REACTIONS (2)
  - Drug effect prolonged [Recovering/Resolving]
  - Hypoaesthesia oral [Recovering/Resolving]

NARRATIVE: CASE EVENT DATE: 20161220
